FAERS Safety Report 13494865 (Version 3)
Quarter: 2017Q3

REPORT INFORMATION
  Report Type: Spontaneous
  Country: US (occurrence: US)
  Receive Date: 20170428
  Receipt Date: 20170803
  Transmission Date: 20171127
  Serious: Yes (Hospitalization)
  Sender: FDA-Public Use
  Company Number: US-PFIZER INC-2017184091

PATIENT
  Age: 45 Year
  Sex: Female

DRUGS (34)
  1. DULOXETINE. [Concomitant]
     Active Substance: DULOXETINE
     Dosage: 30 MG, DAILY
     Route: 048
  2. NEURONTIN [Concomitant]
     Active Substance: GABAPENTIN
     Dosage: 300 MG, 3X/DAY
     Route: 048
     Dates: start: 20160714
  3. ACETAMINOPHEN W/HYDROCODONE [Concomitant]
     Active Substance: ACETAMINOPHEN\HYDROCODONE
     Indication: PAIN
     Dosage: 1 DF, AS NEEDED [HYDROCODONE 5 MG]/[ ACETAMINOPHEN 325 MG] 1 PO Q6H
     Route: 048
     Dates: start: 20140918
  4. ALIGN [Concomitant]
     Active Substance: BIFIDOBACTERIUM LONGUM SUBSP. INFANTIS
     Dosage: 1 DF, DAILY
     Route: 048
     Dates: start: 20151124
  5. FIBERCON [Concomitant]
     Active Substance: CALCIUM POLYCARBOPHIL
     Dosage: 625 MG, 2X/DAY
     Route: 048
     Dates: start: 20160127
  6. XELJANZ XR [Suspect]
     Active Substance: TOFACITINIB CITRATE
     Dosage: 1 DF, DAILY
     Route: 048
     Dates: start: 20160406
  7. DULOXETINE. [Concomitant]
     Active Substance: DULOXETINE
     Dosage: 30 MG, 1X/DAY
     Route: 048
  8. LEVOTHYROXINE SODIUM. [Concomitant]
     Active Substance: LEVOTHYROXINE SODIUM
     Indication: HYPOTHYROIDISM
     Dosage: 100 UG, DAILY
     Route: 048
  9. ZOMIG [Concomitant]
     Active Substance: ZOLMITRIPTAN
     Indication: MIGRAINE
     Dosage: 5 MG, AS NEEDED
     Route: 048
     Dates: start: 20141013
  10. VITAMIN E [Concomitant]
     Active Substance: .ALPHA.-TOCOPHEROL
     Dosage: 1 DF, DAILY
     Route: 048
     Dates: start: 20170418
  11. XELJANZ XR [Suspect]
     Active Substance: TOFACITINIB CITRATE
     Indication: RHEUMATOID ARTHRITIS
     Dosage: 11 MG, 1X/DAY
     Route: 048
     Dates: start: 20160428, end: 20170608
  12. ZOLMITRIPTAN. [Concomitant]
     Active Substance: ZOLMITRIPTAN
     Dosage: 5 MG, DAILY
     Route: 048
  13. GABAPENTIN. [Concomitant]
     Active Substance: GABAPENTIN
     Dosage: 300 MG, 3X/DAY
     Route: 048
  14. BENADRYL ALLERGY [Concomitant]
     Active Substance: DIPHENHYDRAMINE HYDROCHLORIDE
     Indication: RHINITIS ALLERGIC
     Dosage: 25 MG, AS NEEDED
  15. ZYRTEC [Concomitant]
     Active Substance: CETIRIZINE HYDROCHLORIDE
     Indication: RHINITIS ALLERGIC
     Dosage: 10 MG, AS NEEDED
  16. ZYRTEC [Concomitant]
     Active Substance: CETIRIZINE HYDROCHLORIDE
     Indication: HYPERSENSITIVITY
  17. VITAMIN D3 [Concomitant]
     Active Substance: CHOLECALCIFEROL
     Dosage: 5000 IU, DAILY
     Route: 048
     Dates: start: 20160623
  18. DONNATAL [Concomitant]
     Active Substance: ATROPINE SULFATE\HYOSCYAMINE SULFATE\PHENOBARBITAL\SCOPOLAMINE HYDROBROMIDE
     Indication: IRRITABLE BOWEL SYNDROME
     Dosage: 16.2 MG, 2X/DAY AS NEEDED
     Route: 048
     Dates: start: 20161201
  19. SIMETHICONE (DIMETHICONE) [Concomitant]
     Active Substance: DIMETHICONE
     Dosage: 40 MG/0.6 ML
     Route: 048
  20. LOSARTAN. [Concomitant]
     Active Substance: LOSARTAN
     Dosage: 25 MG, DAILY
     Route: 048
  21. DULOXETINE HCL [Concomitant]
     Active Substance: DULOXETINE HYDROCHLORIDE
     Dosage: 30 MG, 1X/DAY
     Route: 048
     Dates: start: 20170515
  22. XELJANZ XR [Suspect]
     Active Substance: TOFACITINIB CITRATE
     Dosage: 11 MG, 1X/DAY
     Route: 048
     Dates: start: 20170619
  23. ONDANSETRON [Concomitant]
     Active Substance: ONDANSETRON
     Dosage: 4 MG, AS NEEDED
     Route: 048
     Dates: start: 20160623
  24. LIPITOR [Concomitant]
     Active Substance: ATORVASTATIN CALCIUM
     Indication: HYPERLIPIDAEMIA
     Dosage: 10 MG, 1X/DAY
     Route: 048
     Dates: start: 20150320
  25. CLONAZEPAM. [Concomitant]
     Active Substance: CLONAZEPAM
     Dosage: 1-3 AS NEEDED (1-3 BY MOUTH PRN)
     Route: 048
     Dates: start: 20160705
  26. XELJANZ XR [Suspect]
     Active Substance: TOFACITINIB CITRATE
     Dosage: 11 MG, DAILY
     Route: 048
     Dates: start: 20160428
  27. CETIRIZINE [Concomitant]
     Active Substance: CETIRIZINE HYDROCHLORIDE
     Dosage: 10 MG, DAILY
     Route: 048
  28. CALCIUM POLYCARBOPHIL. [Concomitant]
     Active Substance: CALCIUM POLYCARBOPHIL
     Dosage: 1250 MG, DAILY
     Route: 048
  29. SUPER B-100 [Concomitant]
     Dosage: 1 DF, DAILY
     Route: 048
     Dates: start: 20160406
  30. ONDANSETRON [Concomitant]
     Active Substance: ONDANSETRON
     Dosage: 4 MG, 4X/DAY (EVERY 6 HOURS)
     Route: 048
  31. SENNA [Concomitant]
     Active Substance: SENNA LEAF\SENNOSIDES\SENNOSIDES A AND B
     Indication: CONSTIPATION
     Dosage: 1 DF, 2X/DAY
     Route: 048
  32. SENNA [Concomitant]
     Active Substance: SENNA LEAF\SENNOSIDES\SENNOSIDES A AND B
     Dosage: 8.6 MG, AS NEEDED (2 TIMES A DAY)
     Route: 048
  33. LINACLOTIDE [Concomitant]
     Active Substance: LINACLOTIDE
     Dosage: 145 UG, UNK
     Route: 048
  34. LOSARTAN POTASSIUM. [Concomitant]
     Active Substance: LOSARTAN POTASSIUM
     Indication: HYPERTENSION
     Dosage: 25 MG, DAILY
     Route: 048
     Dates: start: 20160406

REACTIONS (5)
  - Constipation [Recovered/Resolved]
  - Abdominal pain [Recovering/Resolving]
  - Abdominal distension [Recovering/Resolving]
  - Liver function test abnormal [Unknown]
  - Eye infection [Unknown]

NARRATIVE: CASE EVENT DATE: 20170609
